FAERS Safety Report 21724208 (Version 2)
Quarter: 2022Q4

REPORT INFORMATION
  Report Type: Spontaneous
  Country: US (occurrence: US)
  Receive Date: 20221213
  Receipt Date: 20221213
  Transmission Date: 20230112
  Serious: No
  Sender: FDA-Public Use
  Company Number: US-Dermavant-000148

PATIENT
  Age: 57 Year
  Sex: Female

DRUGS (14)
  1. TAPINAROF [Suspect]
     Active Substance: TAPINAROF
     Indication: Rash
     Dates: start: 20220827
  2. NAC [Concomitant]
  3. VITAMIN B12 [Concomitant]
     Active Substance: CYANOCOBALAMIN
  4. MAGNESIUM [Concomitant]
     Active Substance: MAGNESIUM
  5. DULOXETINE [Concomitant]
     Active Substance: DULOXETINE
  6. GABAPENTIN [Concomitant]
     Active Substance: GABAPENTIN
  7. LISINOPRIL [Concomitant]
     Active Substance: LISINOPRIL
  8. LEVOTHYROXINE [Concomitant]
     Active Substance: LEVOTHYROXINE
  9. VITAMIN D [Concomitant]
     Active Substance: VITAMIN D NOS
  10. CLARITIN [Concomitant]
     Active Substance: LORATADINE
  11. VITAMIN K [Concomitant]
     Active Substance: PHYTONADIONE
  12. BUPROPION [Concomitant]
     Active Substance: BUPROPION
  13. QUETIAPINE [Concomitant]
     Active Substance: QUETIAPINE
  14. LEVOCARNITINE [Concomitant]
     Active Substance: LEVOCARNITINE

REACTIONS (5)
  - Application site erythema [Unknown]
  - Application site pain [Recovering/Resolving]
  - Urticaria [Recovering/Resolving]
  - Pruritus [Recovering/Resolving]
  - Urticaria [Unknown]

NARRATIVE: CASE EVENT DATE: 20220801
